FAERS Safety Report 5366077-4 (Version None)
Quarter: 2007Q2

REPORT INFORMATION
  Report Type: 
  Country: None (occurrence: None)
  Receive Date: 20070611
  Receipt Date: 20070216
  Transmission Date: 20071010
  Serious: Yes (Death, Other)
  Sender: FDA-Public Use
  Company Number: USA-2003-0009699

PATIENT
  Age: 26 Year
  Sex: Male

DRUGS (2)
  1. OXYCONTIN [Suspect]
     Indication: BACK PAIN
     Dosage: 40 MG, SEE TEXT
  2. ALCOHOL (ETHANOL) [Suspect]
     Indication: ALCOHOL USE
     Dosage: SEE TEXT

REACTIONS (3)
  - DRUG DEPENDENCE [None]
  - OVERDOSE [None]
  - SUBSTANCE ABUSE [None]
